FAERS Safety Report 6048728-4 (Version None)
Quarter: 2009Q1

REPORT INFORMATION
  Report Type: 
  Country: None (occurrence: None)
  Receive Date: 20090123
  Receipt Date: 20090115
  Transmission Date: 20090719
  Serious: Yes (Hospitalization)
  Sender: FDA-Public Use
  Company Number: FR-ASTRAZENECA-2009CG00166

PATIENT
  Age: 25301 Day
  Sex: Male

DRUGS (5)
  1. MOPRAL [Suspect]
     Indication: PROPHYLAXIS
     Route: 048
     Dates: start: 20080510, end: 20080727
  2. RIFADIN [Concomitant]
     Indication: PULMONARY TUBERCULOSIS
     Route: 048
     Dates: start: 20080401
  3. PIRILENE [Concomitant]
     Indication: PULMONARY TUBERCULOSIS
     Route: 048
     Dates: start: 20080401
  4. MYAMBUTOL [Concomitant]
     Indication: PULMONARY TUBERCULOSIS
     Route: 048
     Dates: start: 20080401
  5. VITAMIN B1 AND B6 [Concomitant]
     Route: 048
     Dates: start: 20080426

REACTIONS (3)
  - EOSINOPHILIA [None]
  - GENERALISED ERYTHEMA [None]
  - PYREXIA [None]
